FAERS Safety Report 6230187-X (Version None)
Quarter: 2009Q2

REPORT INFORMATION
  Report Type: 
  Country: None (occurrence: None)
  Receive Date: 20090615
  Receipt Date: 20090603
  Transmission Date: 20091009
  Serious: Yes (Other)
  Sender: FDA-Public Use
  Company Number: JP-JNJCH-2009014696

PATIENT
  Age: 36 Year
  Sex: Female

DRUGS (3)
  1. BENADRYL [Suspect]
     Indication: VULVAL DISORDER
     Dosage: TEXT:UNSPECIFIED
     Route: 048
  2. BENADRYL [Suspect]
     Indication: RASH
     Dosage: TEXT:UNSPECIFIED
     Route: 042
  3. TRIMETON [Suspect]
     Indication: DERMATITIS
     Dosage: TEXT:UNSPECIFIED
     Route: 065
     Dates: start: 19480706, end: 19480709

REACTIONS (7)
  - DERMATITIS [None]
  - EXCORIATION [None]
  - PRURITUS [None]
  - RASH ERYTHEMATOUS [None]
  - RASH GENERALISED [None]
  - RASH MACULO-PAPULAR [None]
  - URTICARIA [None]
